FAERS Safety Report 25751763 (Version 1)
Quarter: 2025Q3

REPORT INFORMATION
  Report Type: Spontaneous
  Country: US (occurrence: US)
  Receive Date: 20250902
  Receipt Date: 20250902
  Transmission Date: 20251021
  Serious: Yes (Hospitalization, Other)
  Sender: AMGEN
  Company Number: US-AMGEN-USASP2025168335

PATIENT
  Age: 59 Year
  Sex: Male
  Weight: 82.993 kg

DRUGS (20)
  1. PREDNISONE [Suspect]
     Active Substance: PREDNISONE
     Indication: Product used for unknown indication
     Dosage: 20 MILLIGRAM, QD
     Route: 048
  2. PREDNISONE [Suspect]
     Active Substance: PREDNISONE
     Dosage: 10 MILLIGRAM, QD
     Route: 048
  3. PREDNISONE [Suspect]
     Active Substance: PREDNISONE
     Dosage: 5 MILLIGRAM, QD
     Route: 048
  4. RITUXIMAB [Suspect]
     Active Substance: RITUXIMAB
     Indication: Product used for unknown indication
     Dosage: 1000 MILLIGRAM, Q6MO (ON WEEKS 0 AND 2 AND REPEAT CYCLE EVERY 6 MONTHS)
     Route: 040
  5. ALBUTEROL SULFATE [Concomitant]
     Active Substance: ALBUTEROL SULFATE
     Route: 048
  6. ASPIRIN [Concomitant]
     Active Substance: ASPIRIN
     Dosage: 81 MILLIGRAM, QD
     Route: 048
  7. ATORVASTATIN [Concomitant]
     Active Substance: ATORVASTATIN
     Dosage: 40 MILLIGRAM, QD
     Route: 048
  8. AZATHIOPRINE [Concomitant]
     Active Substance: AZATHIOPRINE
     Dates: start: 20241210
  9. AZATHIOPRINE [Concomitant]
     Active Substance: AZATHIOPRINE
     Dosage: 50 MILLIGRAM, QD
     Route: 048
  10. ELIQUIS [Concomitant]
     Active Substance: APIXABAN
     Dosage: 5 MILLIGRAM, BID
     Route: 048
  11. ESOMEPRAZOLE MAGNESIUM [Concomitant]
     Active Substance: ESOMEPRAZOLE MAGNESIUM
     Dosage: 40 MILLIGRAM, QD
     Route: 048
  12. FUROSEMIDE [Concomitant]
     Active Substance: FUROSEMIDE
  13. GABAPENTIN [Concomitant]
     Active Substance: GABAPENTIN
     Dosage: 600 MILLIGRAM, BID
     Route: 048
  14. IPRATROPIUM BROMIDE [Concomitant]
     Active Substance: IPRATROPIUM BROMIDE
  15. METHOCARBAMOL [Concomitant]
     Active Substance: METHOCARBAMOL
  16. MUCINEX [Concomitant]
     Active Substance: GUAIFENESIN
  17. ACETAMINOPHEN\OXYCODONE HYDROCHLORIDE [Concomitant]
     Active Substance: ACETAMINOPHEN\OXYCODONE HYDROCHLORIDE
  18. POTASSIUM CHLORIDE [Concomitant]
     Active Substance: POTASSIUM CHLORIDE
  19. SERTRALINE [Concomitant]
     Active Substance: SERTRALINE HYDROCHLORIDE
  20. TAMSULOSIN [Concomitant]
     Active Substance: TAMSULOSIN
     Dosage: 0.4 MILLIGRAM, QD
     Route: 048

REACTIONS (55)
  - Aortic arteriosclerosis [Unknown]
  - Arteriosclerosis coronary artery [Unknown]
  - Atheroembolism [Unknown]
  - Atrial fibrillation [Unknown]
  - Cerebrovascular accident [Unknown]
  - Chronic kidney disease [Unknown]
  - Deep vein thrombosis [Unknown]
  - Embolism arterial [Unknown]
  - Erectile dysfunction [Unknown]
  - Hepatitis B [Unknown]
  - Immunodeficiency [Unknown]
  - Immunosuppression [Unknown]
  - Inguinal hernia [Unknown]
  - Interstitial lung disease [Unknown]
  - Myalgia [Unknown]
  - Myocardial infarction [Unknown]
  - Neuropathy peripheral [Unknown]
  - Pneumonia [Unknown]
  - Polymyalgia rheumatica [Unknown]
  - Pulmonary embolism [Unknown]
  - Pulmonary fibrosis [Unknown]
  - Pulmonary hypertension [Unknown]
  - Rheumatoid arthritis [Unknown]
  - Secondary immunodeficiency [Unknown]
  - Substance dependence [Unknown]
  - Abnormal loss of weight [Unknown]
  - Antibody test abnormal [Unknown]
  - Arteritis [Unknown]
  - Arthropod bite [Unknown]
  - Benign prostatic hyperplasia [Unknown]
  - Blood alkaline phosphatase increased [Unknown]
  - Bronchitis [Unknown]
  - Chronic sinusitis [Unknown]
  - Decreased appetite [Unknown]
  - Dermatophytosis [Unknown]
  - Dizziness [Unknown]
  - Dysuria [Unknown]
  - Gastrooesophageal reflux disease [Unknown]
  - Hyperglycaemia [Unknown]
  - Hyperlipidaemia [Unknown]
  - Hypertension [Unknown]
  - Hypotension [Unknown]
  - Insomnia [Unknown]
  - Investigation abnormal [Unknown]
  - Microscopic polyangiitis [Unknown]
  - Mononeuropathy multiplex [Unknown]
  - Night sweats [Unknown]
  - Obesity [Unknown]
  - Platelet disorder [Unknown]
  - Rash erythematous [Unknown]
  - Renal cyst [Unknown]
  - Renal mass [Unknown]
  - Rhinitis allergic [Unknown]
  - Skin lesion [Unknown]
  - Temperature intolerance [Unknown]

NARRATIVE: CASE EVENT DATE: 20150506
